FAERS Safety Report 6292822-X (Version None)
Quarter: 2009Q3

REPORT INFORMATION
  Report Type: 
  Country: None (occurrence: None)
  Receive Date: 20090731
  Receipt Date: 20090713
  Transmission Date: 20100115
  Serious: Yes (Other)
  Sender: FDA-Public Use
  Company Number: US-PFIZER INC-2009240715

PATIENT
  Sex: Female

DRUGS (4)
  1. PROVERA [Suspect]
     Indication: HORMONE REPLACEMENT THERAPY
     Dosage: 2.5-10 MG
     Dates: start: 19890101, end: 19920101
  2. PREMARIN [Suspect]
     Indication: HORMONE REPLACEMENT THERAPY
     Dosage: UNK
     Dates: start: 19890101, end: 19920101
  3. TETRACYCLINE [Concomitant]
     Indication: ROSACEA
     Dosage: UNK
     Dates: start: 19810101, end: 20030901
  4. TETRACYCLINE [Concomitant]
     Indication: ACNE

REACTIONS (2)
  - BREAST CANCER [None]
  - BREAST CYST [None]
